FAERS Safety Report 4566722-7 (Version None)
Quarter: 2005Q1

REPORT INFORMATION
  Report Type: 
  Country: None (occurrence: None)
  Receive Date: 20050126
  Receipt Date: 20050113
  Transmission Date: 20050727
  Serious: Yes (Hospitalization, Other)
  Sender: FDA-Public Use
  Company Number: 2005012627

PATIENT
  Age: 79 Year
  Sex: Female
  Weight: 95.2554 kg

DRUGS (4)
  1. CELEBREX [Suspect]
     Indication: BONE PAIN
     Dosage: 200 MG (200 MG, 1 IN 1 D), ORAL
     Route: 048
  2. LISINOPRIL [Concomitant]
  3. ISOSORBIDE (ISOSORBIDE) [Concomitant]
  4. SALSALATE (SALSALATE) [Concomitant]

REACTIONS (6)
  - BLOOD TEST ABNORMAL [None]
  - CORONARY ARTERY DISEASE [None]
  - DYSPNOEA [None]
  - GASTROINTESTINAL ULCER [None]
  - THERAPEUTIC PRODUCT INEFFECTIVE [None]
  - THYROID FUNCTION TEST ABNORMAL [None]
